FAERS Safety Report 7229871-0 (Version None)
Quarter: 2011Q1

REPORT INFORMATION
  Report Type: 
  Country: None (occurrence: None)
  Receive Date: 20110117
  Receipt Date: 20101123
  Transmission Date: 20110831
  Serious: Yes (Death, Other)
  Sender: FDA-Public Use
  Company Number: US-PURDUE-USA-2010-0056250

PATIENT
  Sex: Female

DRUGS (1)
  1. OXYCONTIN [Suspect]
     Indication: PAIN
     Dosage: UNK
     Dates: start: 19990602, end: 20021008

REACTIONS (9)
  - RESPIRATORY ARREST [None]
  - DEATH [None]
  - CARDIAC DISORDER [None]
  - CHEST PAIN [None]
  - DECREASED APPETITE [None]
  - FOOT FRACTURE [None]
  - NAUSEA [None]
  - DRUG DEPENDENCE [None]
  - WEIGHT DECREASED [None]
